FAERS Safety Report 8596754-3 (Version None)
Quarter: 2012Q3

REPORT INFORMATION
  Report Type: 
  Country: None (occurrence: None)
  Receive Date: 20120815
  Receipt Date: 20120803
  Transmission Date: 20120928
  Serious: Yes (Other)
  Sender: FDA-Public Use
  Company Number: IT-PFIZER INC-2012188802

PATIENT
  Age: 40 Year
  Sex: Male

DRUGS (7)
  1. ROSUVASTATIN CALCIUM [Concomitant]
     Dosage: UNK
     Dates: start: 20120708, end: 20120728
  2. METFORMIN HCL [Concomitant]
     Dosage: UNK
     Dates: start: 20120708, end: 20120728
  3. RAMIPRIL [Suspect]
     Indication: HYPERTENSION
     Dosage: 5 MG, DAILY
     Route: 048
     Dates: start: 20120708, end: 20120715
  4. ATENOLOL [Concomitant]
     Dosage: UNK
     Dates: start: 20120708, end: 20120728
  5. CLOPIDOGREL BISULFATE AND ASPIRIN [Concomitant]
     Dosage: UNK
     Dates: start: 20120708, end: 20120728
  6. FOLINA [Concomitant]
     Dosage: UNK
     Dates: start: 20120708, end: 20120728
  7. LANSOPRAZOLE [Concomitant]
     Dosage: UNK
     Dates: start: 20120708, end: 20120728

REACTIONS (1)
  - VISUAL ACUITY REDUCED [None]
